FAERS Safety Report 10247299 (Version 1)
Quarter: 2014Q2

REPORT INFORMATION
  Report Type: Spontaneous
  Country: IS (occurrence: IS)
  Receive Date: 20140619
  Receipt Date: 20140619
  Transmission Date: 20141212
  Serious: Yes (Hospitalization)
  Sender: FDA-Public Use
  Company Number: IS-TEVA-489631ISR

PATIENT
  Age: 55 Year
  Sex: Male

DRUGS (2)
  1. DILMIN [Suspect]
     Dosage: 360 MILLIGRAM DAILY; 1.5X120 MG TABLETS TWICE DAILY
     Dates: start: 20140515, end: 20140522
  2. RIVOTRIL 0.5MG TABLETS [Concomitant]

REACTIONS (5)
  - Generalised oedema [Recovering/Resolving]
  - Vertigo [Recovering/Resolving]
  - Syncope [Recovering/Resolving]
  - Heart rate decreased [Recovering/Resolving]
  - Blood pressure increased [Recovering/Resolving]
